FAERS Safety Report 12549373 (Version 1)
Quarter: 2016Q3

REPORT INFORMATION
  Report Type: Spontaneous
  Country: US (occurrence: US)
  Receive Date: 20160712
  Receipt Date: 20160712
  Transmission Date: 20161109
  Serious: No
  Sender: FDA-Public Use
  Company Number: US-ALLERGAN-1611964US

PATIENT
  Age: 70 Year
  Sex: Male

DRUGS (1)
  1. DALVANCE [Suspect]
     Active Substance: DALBAVANCIN
     Indication: CELLULITIS
     Dosage: 1 G, SINGLE
     Route: 042
     Dates: start: 20160208, end: 20160208

REACTIONS (2)
  - Inappropriate schedule of drug administration [Unknown]
  - Infusion site extravasation [Recovered/Resolved]

NARRATIVE: CASE EVENT DATE: 20160208
